FAERS Safety Report 5564850-0 (Version None)
Quarter: 2007Q4

REPORT INFORMATION
  Report Type: 
  Country: None (occurrence: None)
  Receive Date: 20071218
  Receipt Date: 20050927
  Transmission Date: 20080405
  Serious: Yes (Other)
  Sender: FDA-Public Use
  Company Number: DE-JNJFOC-20071108085

PATIENT
  Age: 78 Year
  Sex: Male
  Weight: 49 kg

DRUGS (4)
  1. HALOPERIDOL [Suspect]
     Indication: DEMENTIA
     Route: 048
  2. DIGOXIN [Concomitant]
     Route: 065
  3. ANTICOAGULANTS [Concomitant]
     Route: 065
  4. SALICYLATES [Concomitant]
     Route: 065

REACTIONS (3)
  - AKATHISIA [None]
  - COGNITIVE DISORDER [None]
  - EXTRAPYRAMIDAL DISORDER [None]
